FAERS Safety Report 6795092-9 (Version None)
Quarter: 2010Q2

REPORT INFORMATION
  Report Type: 
  Country: None (occurrence: None)
  Receive Date: 20100625
  Receipt Date: 20100623
  Transmission Date: 20101027
  Serious: Yes (Life-Threatening, Hospitalization, Other)
  Sender: FDA-Public Use
  Company Number: PHHY2010GB24061

PATIENT
  Sex: Female
  Weight: 48.7 kg

DRUGS (8)
  1. EXJADE [Suspect]
     Indication: IRON OVERLOAD
     Dosage: UNK
     Route: 048
     Dates: start: 20080401
  2. EXJADE [Suspect]
     Dosage: UNK
     Dates: start: 20090917
  3. PENICILLIN V [Concomitant]
     Dosage: 250 MG, BID
     Route: 048
  4. FOLIC ACID [Concomitant]
     Dosage: 5 MG, QD
  5. TRAMADOL HCL [Concomitant]
     Route: 048
  6. CO-DYDRAMOL [Concomitant]
     Dosage: UNK
     Route: 048
  7. CODEINE PHOSPHATE [Concomitant]
     Dosage: UNK
  8. IBUPROFEN [Concomitant]
     Route: 048

REACTIONS (3)
  - CIRCULATORY COLLAPSE [None]
  - CONVULSION [None]
  - INTRAVENTRICULAR HAEMORRHAGE [None]
